FAERS Safety Report 5416996-5 (Version None)
Quarter: 2007Q3

REPORT INFORMATION
  Report Type: 
  Country: None (occurrence: None)
  Receive Date: 20070718
  Receipt Date: 20070213
  Transmission Date: 20080115
  Serious: Yes (Hospitalization, Other)
  Sender: FDA-Public Use
  Company Number: 2006059384

PATIENT
  Age: 29 Year
  Sex: Female

DRUGS (2)
  1. CELECOXIB [Suspect]
     Dates: start: 19990101, end: 20020401
  2. BEXTRA [Suspect]
     Indication: PAIN
     Dosage: (1 IN 1 D)
     Dates: start: 20021201

REACTIONS (1)
  - DEEP VEIN THROMBOSIS [None]
